FAERS Safety Report 8259546-0 (Version None)
Quarter: 2012Q2

REPORT INFORMATION
  Report Type: 
  Country: None (occurrence: None)
  Receive Date: 20120404
  Receipt Date: 20120402
  Transmission Date: 20120825
  Serious: Yes (Hospitalization, Other)
  Sender: FDA-Public Use
  Company Number: US-MERCK-1109USA02411

PATIENT
  Age: 61 Year
  Sex: Female

DRUGS (14)
  1. FOSAMAX [Suspect]
     Indication: OSTEOPENIA
     Route: 048
     Dates: start: 19990101, end: 20060301
  2. FOSAMAX [Suspect]
     Indication: OSTEOPOROSIS POSTMENOPAUSAL
     Route: 048
     Dates: start: 19990101, end: 20060301
  3. FOSAMAX [Suspect]
     Route: 048
     Dates: start: 19980201
  4. FOSAMAX [Suspect]
     Route: 048
     Dates: start: 19980201
  5. VITAMIN D (UNSPECIFIED) [Concomitant]
     Indication: OSTEOPENIA
     Route: 065
  6. FOSAMAX PLUS D [Suspect]
     Indication: OSTEOPENIA
     Route: 048
     Dates: start: 20060401, end: 20091001
  7. LIPITOR [Concomitant]
     Indication: BLOOD CHOLESTEROL INCREASED
     Route: 065
  8. PREMPRO [Suspect]
     Indication: OSTEOPENIA
     Route: 065
     Dates: start: 19990125, end: 19990426
  9. VITAMIN D (UNSPECIFIED) [Concomitant]
     Indication: OSTEOPOROSIS POSTMENOPAUSAL
     Route: 065
  10. CALCIUM CARBONATE [Concomitant]
     Indication: OSTEOPOROSIS POSTMENOPAUSAL
     Route: 065
  11. SYNTHROID [Concomitant]
     Route: 065
  12. FOSAMAX [Suspect]
     Route: 048
     Dates: start: 20091101, end: 20100701
  13. CALCIUM CARBONATE [Concomitant]
     Indication: OSTEOPENIA
     Route: 065
  14. PREMPRO [Suspect]
     Indication: OSTEOPOROSIS
     Route: 065
     Dates: start: 19990125, end: 19990426

REACTIONS (30)
  - CAROTID ARTERY STENOSIS [None]
  - FOOT FRACTURE [None]
  - SPINAL COMPRESSION FRACTURE [None]
  - ALOPECIA [None]
  - FOOT DEFORMITY [None]
  - CAUDA EQUINA SYNDROME [None]
  - UTERINE LEIOMYOMA [None]
  - FALL [None]
  - LIGAMENT SPRAIN [None]
  - ABDOMINAL DISTENSION [None]
  - LIMB ASYMMETRY [None]
  - FEMUR FRACTURE [None]
  - SCOLIOSIS [None]
  - TOOTH DISORDER [None]
  - DIVERTICULUM [None]
  - PAIN IN EXTREMITY [None]
  - SPONDYLOLISTHESIS [None]
  - SINUS TARSI SYNDROME [None]
  - RECTOCELE [None]
  - OSTEOARTHRITIS [None]
  - DRUG INEFFECTIVE [None]
  - ELECTROCARDIOGRAM T WAVE ABNORMAL [None]
  - ENTEROCELE [None]
  - BREAST CYST [None]
  - BREAST TENDERNESS [None]
  - INTERVERTEBRAL DISC DEGENERATION [None]
  - THERMAL BURN [None]
  - ECCHYMOSIS [None]
  - SCIATICA [None]
  - BACK PAIN [None]
